FAERS Safety Report 10600632 (Version 2)
Quarter: 2014Q4

REPORT INFORMATION
  Report Type: Spontaneous
  Country: US (occurrence: US)
  Receive Date: 20141124
  Receipt Date: 20141124
  Transmission Date: 20150529
  Serious: Yes (Hospitalization)
  Sender: FDA-Public Use
  Company Number: US-CIPLA LTD.-2014US01999

PATIENT

DRUGS (1)
  1. AMLODIPINE [Suspect]
     Active Substance: AMLODIPINE BESYLATE
     Dosage: 425 MG

REACTIONS (8)
  - Atrioventricular block complete [Recovering/Resolving]
  - Electrocardiogram P wave abnormal [Recovering/Resolving]
  - Suicide attempt [Recovering/Resolving]
  - Acute kidney injury [Recovering/Resolving]
  - Toxicity to various agents [Recovering/Resolving]
  - Arrhythmia [Recovering/Resolving]
  - Infarction [Recovering/Resolving]
  - Abnormal faeces [Recovering/Resolving]
